FAERS Safety Report 8977438 (Version 1)
Quarter: 2012Q4

REPORT INFORMATION
  Report Type: 
  Country: US (occurrence: US)
  Receive Date: 20121220
  Receipt Date: 20121220
  Transmission Date: 20130627
  Serious: Yes (Hospitalization, Other)
  Sender: FDA-Public Use
  Company Number: US-ALEXION-A201202338

PATIENT
  Age: 51 Year
  Sex: Male

DRUGS (6)
  1. SOLIRIS 300MG [Suspect]
     Indication: PAROXYSMAL NOCTURNAL HAEMOGLOBINURIA
     Dosage: 600 mg, UNK
     Route: 042
  2. SOLIRIS 300MG [Suspect]
     Dosage: 900 mg, UNK
     Route: 042
     Dates: start: 20121128
  3. CORTICOSTEROID NOS [Concomitant]
     Indication: PREMEDICATION
     Dosage: 100 mg, UNK
     Route: 042
  4. BENADRYL [Concomitant]
     Indication: PREMEDICATION
     Dosage: 50 mg, UNK
     Route: 042
  5. DANAZOL [Concomitant]
  6. PREDNISONE [Concomitant]

REACTIONS (7)
  - Platelet count decreased [Not Recovered/Not Resolved]
  - Headache [Not Recovered/Not Resolved]
  - Nasopharyngitis [Unknown]
  - Idiopathic thrombocytopenic purpura [Unknown]
  - Haemoglobin decreased [Recovering/Resolving]
  - Aplastic anaemia [Unknown]
  - Dizziness [Unknown]
